FAERS Safety Report 25953639 (Version 1)
Quarter: 2025Q4

REPORT INFORMATION
  Report Type: Spontaneous
  Country: US (occurrence: US)
  Receive Date: 20251023
  Receipt Date: 20251023
  Transmission Date: 20260118
  Serious: No
  Sender: MYLAN
  Company Number: US-MYLANLABS-2025M1086294

PATIENT
  Age: 85 Year
  Sex: Female
  Weight: 57.61 kg

DRUGS (2)
  1. WIXELA INHUB [Suspect]
     Active Substance: FLUTICASONE PROPIONATE\SALMETEROL XINAFOATE
     Indication: Asthma
     Dosage: 250 PER 50 MICROGRAM, BID (TWICE DAILY (ONCE IN MORNING AND EVENING))
     Dates: start: 20251004
  2. ALBUTEROL SULFATE [Concomitant]
     Active Substance: ALBUTEROL SULFATE
     Dosage: UNK

REACTIONS (5)
  - Vertigo [Unknown]
  - Cough [Unknown]
  - Insomnia [Unknown]
  - Dysphonia [Unknown]
  - Device malfunction [Unknown]

NARRATIVE: CASE EVENT DATE: 20251007
